FAERS Safety Report 8803619 (Version 2)
Quarter: 2013Q1

REPORT INFORMATION
  Report Type: Spontaneous
  Country: US (occurrence: US)
  Receive Date: 20120924
  Receipt Date: 20130108
  Transmission Date: 20140127
  Serious: No
  Sender: FDA-Public Use
  Company Number: US-ASTRAZENECA-2011SE48511

PATIENT
  Age: 78 Year
  Sex: Female

DRUGS (2)
  1. CRESTOR [Suspect]
     Route: 048
  2. Z PACK [Concomitant]

REACTIONS (5)
  - Malaise [Unknown]
  - Vertigo [Unknown]
  - Middle ear effusion [Unknown]
  - Respiratory tract infection [Unknown]
  - Bronchitis [Unknown]
